FAERS Safety Report 23984877 (Version 2)
Quarter: 2024Q3

REPORT INFORMATION
  Report Type: Spontaneous
  Country: US (occurrence: US)
  Receive Date: 20240618
  Receipt Date: 20240923
  Transmission Date: 20241017
  Serious: No
  Sender: Unknown Manufacturer
  Company Number: US-CYCLE PHARMACEUTICALS LTD-2024-CYC-000067

PATIENT

DRUGS (2)
  1. NITYR [Suspect]
     Active Substance: NITISINONE
     Indication: Tyrosinaemia
     Dosage: 4 DF (TAKE ONE 5 MG TABLET AND FOUR 10 MG TABLETS, DAILY AS DIRECTED)
     Route: 048
  2. NITYR [Suspect]
     Active Substance: NITISINONE
     Indication: Tyrosinaemia
     Dosage: 1 DF, QD (TAKE ONE 5 MG TABLET AND FOUR 10 MG TABLETS, DAILY AS DIRECTED)
     Route: 048

REACTIONS (3)
  - Product dose omission issue [Unknown]
  - Treatment noncompliance [Unknown]
  - Therapeutic product effect incomplete [Unknown]
